FAERS Safety Report 6545047-4 (Version None)
Quarter: 2010Q1

REPORT INFORMATION
  Report Type: 
  Country: None (occurrence: None)
  Receive Date: 20100121
  Receipt Date: 20100118
  Transmission Date: 20100710
  Serious: Yes (Life-Threatening)
  Sender: FDA-Public Use
  Company Number: B0626541A

PATIENT
  Age: 41 Year
  Sex: Female
  Weight: 72.8 kg

DRUGS (1)
  1. AMOXICILLIN AND CLAVULANATE POTASSIUM [Suspect]
     Indication: PROPHYLAXIS
     Route: 042
     Dates: start: 20040608, end: 20040608

REACTIONS (4)
  - BRONCHOSPASM [None]
  - DIZZINESS [None]
  - DYSPNOEA [None]
  - PARAESTHESIA [None]
